FAERS Safety Report 11759098 (Version 1)
Quarter: 2015Q4

REPORT INFORMATION
  Report Type: Spontaneous
  Country: US (occurrence: US)
  Receive Date: 20151120
  Receipt Date: 20151120
  Transmission Date: 20160304
  Serious: No
  Sender: FDA-Public Use
  Company Number: US-ELI_LILLY_AND_COMPANY-US201209008321

PATIENT
  Age: 67 Year
  Sex: Female

DRUGS (1)
  1. FORTEO [Suspect]
     Active Substance: TERIPARATIDE
     Indication: OSTEOPOROSIS
     Dosage: 20 UG, QD
     Dates: start: 201202

REACTIONS (11)
  - Fall [Unknown]
  - Sleep disorder [Unknown]
  - Nausea [Unknown]
  - Muscle spasms [Unknown]
  - Dizziness [Unknown]
  - Middle insomnia [Unknown]
  - Arthralgia [Not Recovered/Not Resolved]
  - Hand fracture [Recovering/Resolving]
  - Musculoskeletal disorder [Unknown]
  - Pain in extremity [Unknown]
  - Gait disturbance [Unknown]

NARRATIVE: CASE EVENT DATE: 2012
